FAERS Safety Report 11853622 (Version 1)
Quarter: 2015Q4

REPORT INFORMATION
  Report Type: Spontaneous
  Country: US (occurrence: US)
  Receive Date: 20151219
  Receipt Date: 20151219
  Transmission Date: 20160305
  Serious: No
  Sender: FDA-Public Use
  Company Number: US-BAUSCH-BL-2015-019560

PATIENT
  Age: 65 Year
  Sex: Female

DRUGS (3)
  1. XENAZINE [Suspect]
     Active Substance: TETRABENAZINE
     Indication: HUNTINGTON^S DISEASE
     Route: 048
     Dates: start: 20150714
  2. XENAZINE [Suspect]
     Active Substance: TETRABENAZINE
     Dosage: 25 MG ? TABLET IN THE MORNING AND 1 TABLET IN THE EVENING
     Route: 048
  3. XENAZINE [Suspect]
     Active Substance: TETRABENAZINE
     Route: 048
     Dates: start: 20150804

REACTIONS (3)
  - Drug dose omission [Unknown]
  - Somnolence [Recovering/Resolving]
  - Drug administration error [Unknown]

NARRATIVE: CASE EVENT DATE: 20150804
